FAERS Safety Report 15781142 (Version 1)
Quarter: 2019Q1

REPORT INFORMATION
  Report Type: Spontaneous
  Country: US (occurrence: US)
  Receive Date: 20190102
  Receipt Date: 20190102
  Transmission Date: 20190417
  Serious: Yes (Life-Threatening, Hospitalization, Other)
  Sender: FDA-Public Use
  Company Number: US-SA-2018SA396991

PATIENT
  Age: 4 Year
  Sex: Male
  Weight: 19 kg

DRUGS (1)
  1. LUMIZYME [Suspect]
     Active Substance: ALGLUCOSIDASE ALFA
     Indication: GLYCOGEN STORAGE DISEASE TYPE II
     Dosage: 500 MG, Q7
     Route: 041
     Dates: start: 20150903

REACTIONS (5)
  - Cardiac arrest [Recovering/Resolving]
  - Pneumonia [Unknown]
  - Pyrexia [Recovered/Resolved]
  - Respiratory arrest [Recovering/Resolving]
  - Rash erythematous [Recovered/Resolved]

NARRATIVE: CASE EVENT DATE: 20181105
